FAERS Safety Report 13043254 (Version 2)
Quarter: 2016Q4

REPORT INFORMATION
  Report Type: Spontaneous
  Country: FR (occurrence: FR)
  Receive Date: 20161219
  Receipt Date: 20161227
  Transmission Date: 20170207
  Serious: Yes (Hospitalization)
  Sender: FDA-Public Use
  Company Number: PHHY2016FR173338

PATIENT
  Age: 40 Year
  Sex: Male
  Weight: 102 kg

DRUGS (3)
  1. COSENTYX [Suspect]
     Active Substance: SECUKINUMAB
     Indication: ANKYLOSING SPONDYLITIS
     Dosage: INITIATED DAY-1, DAY-7, DAY-15 AND DAY-30 THEN MONTHLY
     Route: 058
     Dates: start: 20161019
  2. APRANAX [Suspect]
     Active Substance: NAPROXEN
     Indication: ANKYLOSING SPONDYLITIS
     Dosage: 550 MG, BID (LONG COURSE)
     Route: 048
  3. SYMBICORT [Concomitant]
     Active Substance: BUDESONIDE\FORMOTEROL FUMARATE DIHYDRATE
     Indication: ASTHMA
     Route: 065
     Dates: start: 201610

REACTIONS (3)
  - Staphylococcal bacteraemia [Recovered/Resolved]
  - Neck pain [Unknown]
  - Inflammation [Unknown]

NARRATIVE: CASE EVENT DATE: 20161203
